FAERS Safety Report 15713644 (Version 1)
Quarter: 2018Q4

REPORT INFORMATION
  Report Type: Spontaneous
  Country: US (occurrence: US)
  Receive Date: 20181129
  Receipt Date: 20181129
  Transmission Date: 20190205
  Serious: No
  Sender: FDA-Public Use
  Company Number: None

PATIENT
  Age: 68 Year
  Sex: Male
  Weight: 112.49 kg

DRUGS (2)
  1. ACYCLOVIR 400MG TABS, 400 MG [Suspect]
     Active Substance: ACYCLOVIR
     Dosage: ?          OTHER FREQUENCY:ONE IN AM + PM;?
     Route: 048
  2. ALLOPURINOL 300MG [Suspect]
     Active Substance: ALLOPURINOL

REACTIONS (2)
  - Product appearance confusion [None]
  - Circumstance or information capable of leading to medication error [None]

NARRATIVE: CASE EVENT DATE: 20181124
